FAERS Safety Report 6070079-2 (Version None)
Quarter: 2009Q1

REPORT INFORMATION
  Report Type: 
  Country: None (occurrence: None)
  Receive Date: 20090209
  Receipt Date: 20090131
  Transmission Date: 20090719
  Serious: Yes (Life-Threatening)
  Sender: FDA-Public Use
  Company Number: US-BAYER-200910344BCC

PATIENT
  Age: 25 Year
  Sex: Female
  Weight: 57 kg

DRUGS (7)
  1. ALEVE [Suspect]
     Indication: TOOTHACHE
     Dosage: TOTAL DAILY DOSE: 440 MG  UNIT DOSE: 220 MG
     Dates: start: 20021124
  2. ALEVE [Suspect]
     Dosage: UNIT DOSE: 220 MG
     Dates: start: 20030101
  3. YAZ [Concomitant]
  4. XANAX [Concomitant]
  5. METABOLIFE [Concomitant]
  6. TYLENOL [Concomitant]
  7. ADVIL LIQUI-GELS [Concomitant]

REACTIONS (8)
  - ANAPHYLACTIC SHOCK [None]
  - BLOOD PRESSURE DECREASED [None]
  - COMA [None]
  - DEPRESSED LEVEL OF CONSCIOUSNESS [None]
  - PRURITUS [None]
  - SWOLLEN TONGUE [None]
  - TUNNEL VISION [None]
  - URTICARIA [None]
